FAERS Safety Report 19226543 (Version 2)
Quarter: 2021Q2

REPORT INFORMATION
  Report Type: Spontaneous
  Country: CZ (occurrence: CZ)
  Receive Date: 20210506
  Receipt Date: 20210609
  Transmission Date: 20210717
  Serious: Yes (Hospitalization, Other)
  Sender: FDA-Public Use
  Company Number: CZ-GLAXOSMITHKLINE-CZCH2021024686

PATIENT
  Age: 47 Year
  Sex: Female

DRUGS (14)
  1. DICLOFENAC [Suspect]
     Active Substance: DICLOFENAC
     Indication: CHEST PAIN
     Dosage: 50 MG (THERAPY START DATE?MAR?2021)
     Route: 048
     Dates: start: 202103
  2. LIDOCAINE. [Concomitant]
     Active Substance: LIDOCAINE
     Indication: PREMEDICATION
     Dosage: UNK(SPRAY)
     Route: 061
  3. ZOLADEX [Concomitant]
     Active Substance: GOSERELIN ACETATE
     Indication: PRODUCT USED FOR UNKNOWN INDICATION
     Dosage: UNK(3.6 (UNSPECIFIED UNITS))
     Route: 065
  4. APO?GABAPENTIN [Concomitant]
     Active Substance: GABAPENTIN
     Indication: PARAESTHESIA
     Dosage: 100 MG, QD
     Route: 048
     Dates: start: 2017
  5. LETROZOLE. [Concomitant]
     Active Substance: LETROZOLE
     Indication: PRODUCT USED FOR UNKNOWN INDICATION
     Dosage: UNK(2.5 (UNSPECIFIED UNITS))
     Route: 065
  6. REBIF [Suspect]
     Active Substance: INTERFERON BETA-1A
     Indication: RELAPSING-REMITTING MULTIPLE SCLEROSIS
     Dosage: UNK(STARTED ON AN UNKNOWN DATE AND DISCONTINUED ON AN UNKNOWN DATE)
     Route: 058
  7. MEDROL [Concomitant]
     Active Substance: METHYLPREDNISOLONE
     Dosage: 8 MG, QD
     Route: 048
     Dates: start: 201001
  8. CALTRATE WITH VITAMIN D [Concomitant]
     Active Substance: CALCIUM CARBONATE\CHOLECALCIFEROL
     Indication: OSTEOPENIA
     Dosage: UNK(400 (UNSPECIFIED UNITS))
     Route: 048
  9. REBIF [Suspect]
     Active Substance: INTERFERON BETA-1A
     Dosage: UNK
     Route: 058
     Dates: start: 2009, end: 2017
  10. MAGNOSOLV [Concomitant]
     Active Substance: MAGNESIUM CARBONATE\MAGNESIUM OXIDE
     Indication: MUSCLE SPASMS
     Dosage: 365 MG, QD
     Route: 048
     Dates: start: 2007
  11. MEDROL [Concomitant]
     Active Substance: METHYLPREDNISOLONE
     Indication: MULTIPLE SCLEROSIS
     Dosage: UNK(16 (UNSPECIFIED UNITS))
     Route: 048
  12. REBIF [Suspect]
     Active Substance: INTERFERON BETA-1A
     Dosage: 44 UG
     Route: 058
     Dates: start: 201802, end: 20210305
  13. CALTRATE WITH VITAMIN D [Concomitant]
     Active Substance: CALCIUM CARBONATE\CHOLECALCIFEROL
     Dosage: 600 MG, QD
     Route: 048
     Dates: start: 2010
  14. ITAKEM [Concomitant]
     Indication: DEPRESSION
     Dosage: 5 MG, QD
     Route: 048
     Dates: start: 2018

REACTIONS (32)
  - Pyelocaliectasis [Unknown]
  - Dizziness [Unknown]
  - Hypoalbuminaemia [Recovering/Resolving]
  - Hypoproteinaemia [Unknown]
  - Lacrimation increased [Unknown]
  - Gastritis erosive [Recovering/Resolving]
  - Thrombocytopenia [Recovering/Resolving]
  - Drug interaction [Recovered/Resolved]
  - Dyspnoea [Recovering/Resolving]
  - Herpes zoster [Unknown]
  - Lymphopenia [Unknown]
  - Hypertension [Recovering/Resolving]
  - Poor quality sleep [Unknown]
  - Pancreatic disorder [Unknown]
  - Acute kidney injury [Recovering/Resolving]
  - Influenza like illness [Unknown]
  - Liver disorder [Unknown]
  - Tenderness [Unknown]
  - Aortic valve incompetence [Unknown]
  - Melaena [Recovered/Resolved]
  - Non-cardiac chest pain [Unknown]
  - Vertigo [Unknown]
  - Chronic kidney disease [Unknown]
  - Mucinous breast carcinoma [Unknown]
  - Eye irritation [Unknown]
  - Ocular hyperaemia [Unknown]
  - Influenza [Unknown]
  - Hiatus hernia [Unknown]
  - Anaemia [Recovering/Resolving]
  - Thrombotic microangiopathy [Recovering/Resolving]
  - Pleural effusion [Unknown]
  - Tachycardia [Unknown]

NARRATIVE: CASE EVENT DATE: 2012
